FAERS Safety Report 25078373 (Version 1)
Quarter: 2025Q1

REPORT INFORMATION
  Report Type: Spontaneous
  Country: US (occurrence: None)
  Receive Date: 20250313
  Receipt Date: 20250313
  Transmission Date: 20250408
  Serious: No
  Sender: FDA-CTU
  Company Number: None

PATIENT
  Sex: Female

DRUGS (8)
  1. XOLAIR [Suspect]
     Active Substance: OMALIZUMAB
     Dosage: FREQUENCY : EVERY OTHER WEEK;?
     Route: 058
     Dates: start: 20230127
  2. BENZONATATE CAP 100MG [Concomitant]
  3. FASENRA [Concomitant]
     Active Substance: BENRALIZUMAB
  4. GUAIFENESIN SOL CODEINE [Concomitant]
  5. LIDOCAINE SOL4% [Concomitant]
  6. LYRICA CAP 75MG [Concomitant]
  7. MONTELUKAST SODIUM [Concomitant]
     Active Substance: MONTELUKAST SODIUM
  8. PREDNISONE [Concomitant]
     Active Substance: PREDNISONE

REACTIONS (2)
  - General symptom [None]
  - Asthma [None]
